FAERS Safety Report 13112587 (Version 1)
Quarter: 2017Q1

REPORT INFORMATION
  Report Type: Spontaneous
  Country: US (occurrence: US)
  Receive Date: 20170113
  Receipt Date: 20170113
  Transmission Date: 20170428
  Serious: No
  Sender: FDA-Public Use
  Company Number: US-SUN PHARMACEUTICAL INDUSTRIES LTD-2016US-113569

PATIENT
  Sex: Male

DRUGS (4)
  1. ATORVASTATIN (MYLA) [Suspect]
     Active Substance: ATORVASTATIN
     Indication: PRODUCT USED FOR UNKNOWN INDICATION
     Dosage: UNK
     Route: 065
  2. HYDROCHLOROTHIAZIDE. [Concomitant]
     Active Substance: HYDROCHLOROTHIAZIDE
     Indication: HYPERTENSION
     Dosage: HALF TABLET A DAY
     Route: 065
  3. BENZOPRIL [Concomitant]
     Indication: HYPERTENSION
     Dosage: HALF TABLET IN AM, HALF TABLET IN PM
     Route: 065
  4. ATORVASTATIN [Suspect]
     Active Substance: ATORVASTATIN
     Indication: PRODUCT USED FOR UNKNOWN INDICATION
     Dosage: UNK
     Route: 065

REACTIONS (4)
  - Product substitution issue [Recovered/Resolved]
  - Therapeutic response decreased [None]
  - Myalgia [Recovering/Resolving]
  - Blood pressure increased [Recovering/Resolving]
